FAERS Safety Report 5762652-3 (Version None)
Quarter: 2008Q2

REPORT INFORMATION
  Report Type: 
  Country: None (occurrence: None)
  Receive Date: 20080609
  Receipt Date: 20080603
  Transmission Date: 20081010
  Serious: Yes (Hospitalization)
  Sender: FDA-Public Use
  Company Number: FR-AVENTIS-200812071FR

PATIENT
  Age: 59 Year
  Sex: Male

DRUGS (4)
  1. ARAVA [Suspect]
     Route: 048
     Dates: start: 20020301
  2. ENBREL [Suspect]
     Route: 058
     Dates: start: 20060404, end: 20080301
  3. INDOCID                            /00003801/ [Concomitant]
     Route: 048
  4. XATRAL                             /00975301/ [Concomitant]
     Indication: PROSTATIC ADENOMA
     Route: 048

REACTIONS (2)
  - MEDICATION ERROR [None]
  - MYCOSIS FUNGOIDES [None]
